FAERS Safety Report 6385370-X (Version None)
Quarter: 2009Q4

REPORT INFORMATION
  Report Type: 
  Country: None (occurrence: None)
  Receive Date: 20091002
  Receipt Date: 20080902
  Transmission Date: 20100525
  Serious: No
  Sender: FDA-Public Use
  Company Number: US-ASTRAZENECA-2008UW18016

PATIENT
  Sex: Female
  Weight: 70.3 kg

DRUGS (2)
  1. ARIMIDEX [Suspect]
     Indication: BREAST CANCER
     Route: 048
     Dates: start: 20080514
  2. LIPITOR [Concomitant]

REACTIONS (2)
  - ANXIETY [None]
  - SENSATION OF PRESSURE [None]
